FAERS Safety Report 23539918 (Version 1)
Quarter: 2024Q1

REPORT INFORMATION
  Report Type: Spontaneous
  Country: GB (occurrence: None)
  Receive Date: 20240219
  Receipt Date: 20240219
  Transmission Date: 20240410
  Serious: Yes (Hospitalization)
  Sender: FDA-Public Use
  Company Number: 2024A040862

PATIENT
  Age: 68 Year
  Sex: Female

DRUGS (8)
  1. OMEPRAZOLE [Suspect]
     Active Substance: OMEPRAZOLE
  2. DULOXETINE [Suspect]
     Active Substance: DULOXETINE
  3. DERMOL [Concomitant]
     Active Substance: BENZALKONIUM CHLORIDE\CHLORHEXIDINE HYDROCHLORIDE\ISOPROPYL MYRISTATE\PARAFFIN
     Dosage: 500 LOTION
  4. CALCIUM CARBONATE [Concomitant]
     Active Substance: CALCIUM CARBONATE
  5. LEVOTHYROXINE SODIUM [Concomitant]
     Active Substance: LEVOTHYROXINE SODIUM
  6. PREDNISOLONE [Concomitant]
     Active Substance: PREDNISOLONE
  7. GABAPENTIN [Concomitant]
     Active Substance: GABAPENTIN
  8. CHOLECALCIFEROL [Concomitant]
     Active Substance: CHOLECALCIFEROL
     Dosage: 400 INTERNATIONAL UNITS

REACTIONS (3)
  - Inappropriate antidiuretic hormone secretion [Recovered/Resolved with Sequelae]
  - Hyponatraemia [Unknown]
  - Constipation [Unknown]
